FAERS Safety Report 9788015 (Version 1)
Quarter: 2013Q4

REPORT INFORMATION
  Report Type: Spontaneous
  Country: US (occurrence: None)
  Receive Date: 20131227
  Receipt Date: 20131227
  Transmission Date: 20140711
  Serious: Yes (Other)
  Sender: FDA-Public Use
  Company Number: None

PATIENT
  Sex: Female

DRUGS (1)
  1. CIPROFLOXACIN [Suspect]
     Indication: DIVERTICULITIS
     Dosage: 1 BAG Q12H INTRAVENOUS
     Route: 042
     Dates: start: 20131226, end: 20131226

REACTIONS (3)
  - Infusion site pruritus [None]
  - Infusion site erythema [None]
  - Infusion related reaction [None]
